FAERS Safety Report 8552198-1 (Version None)
Quarter: 2012Q3

REPORT INFORMATION
  Report Type: 
  Country: None (occurrence: None)
  Receive Date: 20120731
  Receipt Date: 20120720
  Transmission Date: 20120928
  Serious: No
  Sender: FDA-Public Use
  Company Number: US-BIOGENIDEC-2012BI026599

PATIENT
  Sex: Female

DRUGS (2)
  1. MUSCLE RELAXER (NOS) [Concomitant]
     Indication: MUSCULOSKELETAL STIFFNESS
     Route: 048
  2. AVONEX [Suspect]
     Indication: MULTIPLE SCLEROSIS
     Route: 030
     Dates: start: 20120630

REACTIONS (2)
  - MYALGIA [None]
  - FEELING COLD [None]
